FAERS Safety Report 12698171 (Version 2)
Quarter: 2016Q4

REPORT INFORMATION
  Report Type: Spontaneous
  Country: US (occurrence: US)
  Receive Date: 20160830
  Receipt Date: 20161025
  Transmission Date: 20170207
  Serious: No
  Sender: FDA-Public Use
  Company Number: US-JNJFOC-20160712176

PATIENT
  Age: 12 Year
  Sex: Male

DRUGS (6)
  1. RISPERIDONE. [Suspect]
     Active Substance: RISPERIDONE
     Indication: ABNORMAL BEHAVIOUR
     Route: 048
     Dates: start: 200901, end: 201504
  2. RISPERDAL CONSTA [Suspect]
     Active Substance: RISPERIDONE
     Indication: ABNORMAL BEHAVIOUR
     Route: 030
     Dates: start: 200709, end: 200902
  3. RISPERDAL [Suspect]
     Active Substance: RISPERIDONE
     Indication: ABNORMAL BEHAVIOUR
     Route: 048
     Dates: start: 200709, end: 200902
  4. RISPERIDONE. [Suspect]
     Active Substance: RISPERIDONE
     Indication: ABNORMAL BEHAVIOUR
     Route: 048
     Dates: start: 200901, end: 201203
  5. RISPERIDONE. [Suspect]
     Active Substance: RISPERIDONE
     Indication: ABNORMAL BEHAVIOUR
     Route: 048
     Dates: start: 200807
  6. RISPERIDONE. [Suspect]
     Active Substance: RISPERIDONE
     Indication: PRODUCT USED FOR UNKNOWN INDICATION
     Route: 048

REACTIONS (6)
  - Drug administered to patient of inappropriate age [Unknown]
  - Weight increased [Unknown]
  - Emotional disorder [Unknown]
  - Gynaecomastia [Unknown]
  - Hyperprolactinaemia [Unknown]
  - Off label use [Unknown]

NARRATIVE: CASE EVENT DATE: 2007
